FAERS Safety Report 5468330-2 (Version None)
Quarter: 2007Q3

REPORT INFORMATION
  Report Type: 
  Country: None (occurrence: None)
  Receive Date: 20070926
  Receipt Date: 20070925
  Transmission Date: 20080115
  Serious: Yes (Death)
  Sender: FDA-Public Use
  Company Number: A0683059A

PATIENT
  Age: 68 Year
  Sex: Male
  Weight: 83.2 kg

DRUGS (8)
  1. AVANDIA [Suspect]
     Dosage: 8MG UNKNOWN
     Route: 048
     Dates: start: 20060719, end: 20070830
  2. DIABETES MEDICATION [Concomitant]
     Route: 065
  3. INHIBACE [Concomitant]
  4. LOZIDE [Concomitant]
  5. METFORMIN [Concomitant]
  6. GLYBURIDE [Concomitant]
  7. NORVASC [Concomitant]
  8. CRESTOR [Concomitant]

REACTIONS (3)
  - CARDIOVASCULAR DISORDER [None]
  - CIRCULATORY COLLAPSE [None]
  - MYOCARDIAL INFARCTION [None]
